FAERS Safety Report 4811708-8 (Version None)
Quarter: 2005Q4

REPORT INFORMATION
  Report Type: 
  Country: None (occurrence: None)
  Receive Date: 20051025
  Receipt Date: 20051012
  Transmission Date: 20060501
  Serious: Yes (Hospitalization)
  Sender: FDA-Public Use
  Company Number: 2005144414

PATIENT
  Age: 43 Year
  Sex: Male

DRUGS (11)
  1. LIPITOR [Suspect]
     Indication: HYPERLIPIDAEMIA
     Dosage: 10 MG (1 D), ORAL
     Route: 048
     Dates: start: 20050919, end: 20051006
  2. TICLOPIDINE HCL [Concomitant]
     Indication: ILL-DEFINED DISORDER
     Dosage: 100 MG (D), ORAL
     Route: 048
     Dates: start: 20050918, end: 20051010
  3. PLETAL [Concomitant]
  4. FAMOTIDINE [Concomitant]
  5. BLOPRESS (CANDESARTAN CILEXETIL) [Concomitant]
  6. CARVEDILOL [Concomitant]
  7. MAGNESIUM OXIDE (MAGNESIUM OXIDE) [Concomitant]
  8. SELBEX (TEPRENONE) [Concomitant]
  9. VALSARTAN [Concomitant]
  10. PRAVASTATIN [Concomitant]
  11. ASPIRIN [Concomitant]

REACTIONS (5)
  - HEPATIC FUNCTION ABNORMAL [None]
  - HEPATITIS [None]
  - PHARYNX DISCOMFORT [None]
  - PYREXIA [None]
  - URTICARIA [None]
